FAERS Safety Report 6023421-2 (Version None)
Quarter: 2008Q4

REPORT INFORMATION
  Report Type: 
  Country: None (occurrence: None)
  Receive Date: 20081230
  Receipt Date: 20081229
  Transmission Date: 20090506
  Serious: Yes (Death, Hospitalization)
  Sender: FDA-Public Use
  Company Number: US-BRISTOL-MYERS SQUIBB COMPANY-13471321

PATIENT
  Age: 68 Year
  Sex: Male
  Weight: 81 kg

DRUGS (16)
  1. CARBOPLATIN [Suspect]
     Indication: NON-SMALL CELL LUNG CANCER
     Route: 042
     Dates: start: 20060403, end: 20060403
  2. TAXOL [Suspect]
     Indication: NON-SMALL CELL LUNG CANCER
     Route: 042
     Dates: start: 20060403, end: 20060403
  3. PF-3512676 [Suspect]
     Indication: NON-SMALL CELL LUNG CANCER
     Dosage: 15MG ON DAY8 AND DAY 15 OF EACH CYCLE, EVERY 3 WEEKS, FOR A TOTAL DAILY DOSE OF 15MG
     Route: 058
     Dates: start: 20060410, end: 20060417
  4. OXYCONTIN [Concomitant]
     Route: 048
     Dates: start: 20060201, end: 20060416
  5. ASPIRIN [Concomitant]
     Route: 048
     Dates: start: 20060201, end: 20060424
  6. NICODERM [Concomitant]
     Route: 062
     Dates: start: 20060201, end: 20060424
  7. MEGACE [Concomitant]
     Route: 048
     Dates: start: 20060220, end: 20060424
  8. ALBUTEROL (ARM) [Concomitant]
     Route: 055
     Dates: start: 20060201, end: 20060424
  9. ZOMETA [Concomitant]
     Route: 042
     Dates: start: 20060307, end: 20060404
  10. PROCRIT [Concomitant]
     Route: 058
     Dates: start: 20060314, end: 20060417
  11. INFED [Concomitant]
     Route: 042
     Dates: start: 20060404, end: 20060412
  12. COLACE [Concomitant]
     Route: 048
     Dates: start: 20060405, end: 20060424
  13. LEVAQUIN [Concomitant]
     Route: 048
     Dates: start: 20060407, end: 20060413
  14. RED BLOOD CELLS [Concomitant]
     Route: 042
     Dates: start: 20060411, end: 20060411
  15. OXYCODONE [Concomitant]
     Route: 048
     Dates: start: 20060417
  16. TAMSULOSIN HCL [Concomitant]
     Route: 048
     Dates: start: 20060417

REACTIONS (3)
  - HYPERCALCAEMIA [None]
  - MALIGNANT NEOPLASM PROGRESSION [None]
  - METABOLIC ENCEPHALOPATHY [None]
